FAERS Safety Report 9125968 (Version 1)
Quarter: 2013Q1

REPORT INFORMATION
  Report Type: Spontaneous
  Country: US (occurrence: US)
  Receive Date: 20130228
  Receipt Date: 20130228
  Transmission Date: 20140127
  Serious: No
  Sender: FDA-Public Use
  Company Number: US-009507513-1302USA009562

PATIENT
  Sex: 0

DRUGS (1)
  1. ASMANEX TWISTHALER [Suspect]
     Indication: BRONCHITIS
     Dosage: INHALE TWO PUFFS BY MOUTH TWICE DAILY
     Route: 055
     Dates: start: 20130201, end: 201302

REACTIONS (3)
  - Drug dose omission [Unknown]
  - Product quality issue [Unknown]
  - No adverse event [Unknown]
